FAERS Safety Report 5389830-X (Version None)
Quarter: 2007Q3

REPORT INFORMATION
  Report Type: 
  Country: None (occurrence: None)
  Receive Date: 20070718
  Receipt Date: 20070710
  Transmission Date: 20080115
  Serious: Yes (Other)
  Sender: FDA-Public Use
  Company Number: PHEH2007US09843

PATIENT
  Sex: Male

DRUGS (2)
  1. RITALIN-SR [Suspect]
     Route: 048
  2. ANTIBIOTICS [Suspect]

REACTIONS (2)
  - AGITATION [None]
  - MEMORY IMPAIRMENT [None]
